FAERS Safety Report 5794400-5 (Version None)
Quarter: 2008Q2

REPORT INFORMATION
  Report Type: 
  Country: None (occurrence: None)
  Receive Date: 20080625
  Receipt Date: 20080609
  Transmission Date: 20081010
  Serious: Yes (Hospitalization)
  Sender: FDA-Public Use
  Company Number: ALA_00069_2008

PATIENT
  Age: 86 Year
  Sex: Male

DRUGS (22)
  1. METOCLOPRAMIDE HCL [Suspect]
     Indication: DRUG USE FOR UNKNOWN INDICATION
     Dosage: (10 MG QID)
  2. ISOSORBIDE MONONITRATE 15 MG [Suspect]
     Indication: POST-TRAUMATIC EPILEPSY
     Dosage: (DF)
  3. NITROGLYCERIN [Suspect]
     Indication: DRUG USE FOR UNKNOWN INDICATION
     Dosage: (0.4 MG PRN SUBLINGUAL)
     Route: 060
  4. ASPIRIN [Suspect]
     Indication: DRUG USE FOR UNKNOWN INDICATION
     Dosage: (LOW DOSE (FREQUENCY UNKNOWN))
  5. CLOPIDOGREL [Suspect]
     Indication: DRUG USE FOR UNKNOWN INDICATION
     Dosage: (DF)
  6. DONEPEZIL HCL [Suspect]
     Indication: DRUG USE FOR UNKNOWN INDICATION
     Dosage: (DF)
  7. CYPROHEPTADINE HCL [Suspect]
     Indication: DRUG USE FOR UNKNOWN INDICATION
     Dosage: (4 MG QD)
  8. FAMOTIDINE [Suspect]
     Indication: DRUG USE FOR UNKNOWN INDICATION
     Dosage: (40 MG QD)
  9. FLUNISOLIDE [Suspect]
     Indication: DRUG USE FOR UNKNOWN INDICATION
     Dosage: (DF)
  10. FUROSEMIDE [Suspect]
     Indication: DRUG USE FOR UNKNOWN INDICATION
     Dosage: (20 MG 3X/WEEK)
  11. INSULIN INSULATARD NPH NORDISK [Suspect]
     Indication: DRUG USE FOR UNKNOWN INDICATION
     Dosage: (15 IU QD EVERY MORNING)
  12. INSULIN ASPART [Suspect]
     Indication: DRUG USE FOR UNKNOWN INDICATION
     Dosage: (SLIDING SCALE)
  13. ALBUTEROL W/IPRATROPIUM [Suspect]
     Indication: DRUG USE FOR UNKNOWN INDICATION
     Dosage: )
  14. MOMETASONE FUROATE [Suspect]
     Indication: DRUG USE FOR UNKNOWN INDICATION
     Dosage: (DF RESPIRATORY (INHALATION))
     Route: 055
  15. LEVETIRACETAM [Suspect]
     Indication: POST-TRAUMATIC EPILEPSY
     Dosage: (1000 MG BID)
  16. LISINOPRIL [Suspect]
     Indication: DRUG USE FOR UNKNOWN INDICATION
     Dosage: (2.5 MG QD)
  17. MAGNESIUM GLUCONATE [Suspect]
     Indication: DRUG USE FOR UNKNOWN INDICATION
     Dosage: (500 MG QD)
  18. METOPROLOL SUCCINATE [Suspect]
     Indication: DRUG USE FOR UNKNOWN INDICATION
     Dosage: (75 MG QD)
  19. MODAFINIL [Suspect]
     Indication: APATHY
     Dosage: (200 MG FREQUENCY UNKNOWN)
  20. MODAFINIL [Suspect]
     Indication: FATIGUE
     Dosage: (200 MG FREQUENCY UNKNOWN)
  21. SERTRALINE [Suspect]
     Indication: DRUG USE FOR UNKNOWN INDICATION
     Dosage: (75 MG QD)
  22. SIMVASTATIN [Suspect]
     Indication: DRUG USE FOR UNKNOWN INDICATION
     Dosage: (40 MG QD DRUG TAKEN AT BEDTIME)

REACTIONS (6)
  - ACUTE MYOCARDIAL INFARCTION [None]
  - ANOREXIA [None]
  - DEHYDRATION [None]
  - IMPAIRED GASTRIC EMPTYING [None]
  - NAUSEA [None]
  - ORAL INTAKE REDUCED [None]
